FAERS Safety Report 9461980 (Version 3)
Quarter: 2013Q3

REPORT INFORMATION
  Report Type: Spontaneous
  Country: US (occurrence: US)
  Receive Date: 20130816
  Receipt Date: 20130924
  Transmission Date: 20140515
  Serious: Yes (Death, Other)
  Sender: FDA-Public Use
  Company Number: US-JNJFOC-20130807523

PATIENT
  Sex: 0

DRUGS (1)
  1. INFLIXIMAB [Suspect]
     Indication: CROHN^S DISEASE
     Route: 042

REACTIONS (10)
  - Death [Fatal]
  - Neoplasm malignant [Unknown]
  - Serum sickness-like reaction [Unknown]
  - Lupus-like syndrome [Unknown]
  - Adverse event [Unknown]
  - Infusion related reaction [Unknown]
  - Sepsis [Fatal]
  - Pneumonia [Fatal]
  - Abdominal abscess [Unknown]
  - Viral infection [Unknown]
